FAERS Safety Report 9060901 (Version 1)
Quarter: 2013Q1

REPORT INFORMATION
  Report Type: Spontaneous
  Country: US (occurrence: US)
  Receive Date: 20130212
  Receipt Date: 20130212
  Transmission Date: 20140127
  Serious: Yes (Disabling)
  Sender: FDA-Public Use
  Company Number: US-ROXANE LABORATORIES, INC.-2013-RO-00224RO

PATIENT
  Sex: Female

DRUGS (7)
  1. PREDNISONE [Suspect]
  2. SENOKOT-S [Suspect]
  3. CELEBREX [Suspect]
  4. COD LIVER OIL [Suspect]
  5. POLYETHYLENE GLYCOL [Suspect]
  6. VITAMIN A [Concomitant]
  7. VITAMIN D [Concomitant]

REACTIONS (2)
  - Blindness [Unknown]
  - Amnesia [Unknown]
